FAERS Safety Report 8611205-8 (Version None)
Quarter: 2012Q3

REPORT INFORMATION
  Report Type: 
  Country: None (occurrence: None)
  Receive Date: 20120822
  Receipt Date: 20120814
  Transmission Date: 20120928
  Serious: Yes (Other)
  Sender: FDA-Public Use
  Company Number: AU-JNJFOC-20120705770

PATIENT
  Sex: Male

DRUGS (3)
  1. REMICADE [Suspect]
     Indication: PSORIATIC ARTHROPATHY
     Route: 042
     Dates: start: 20120504
  2. REMICADE [Suspect]
     Route: 042
     Dates: start: 20120521
  3. REMICADE [Suspect]
     Route: 042
     Dates: start: 20120615

REACTIONS (2)
  - INTERVERTEBRAL DISC DEGENERATION [None]
  - MALIGNANT MELANOMA [None]
